FAERS Safety Report 14607871 (Version 1)
Quarter: 2018Q1

REPORT INFORMATION
  Report Type: Spontaneous
  Country: ES (occurrence: ES)
  Receive Date: 20180307
  Receipt Date: 20180307
  Transmission Date: 20180509
  Serious: Yes (Other)
  Sender: FDA-Public Use
  Company Number: ES-AMGEN-ESPSP2018028670

PATIENT
  Age: 62 Year
  Sex: Female

DRUGS (4)
  1. HIDROFEROL [Concomitant]
     Active Substance: CALCIFEDIOL
  2. EZETROL [Concomitant]
     Active Substance: EZETIMIBE
  3. EUTIROX [Concomitant]
     Active Substance: LEVOTHYROXINE SODIUM
     Dosage: 100 UNK, UNK
  4. PROLIA [Suspect]
     Active Substance: DENOSUMAB
     Indication: OSTEOPOROSIS
     Dosage: UNK
     Route: 065
     Dates: start: 201501, end: 201601

REACTIONS (3)
  - Hypercalciuria [Unknown]
  - Pathological fracture [Unknown]
  - Dental operation [Unknown]

NARRATIVE: CASE EVENT DATE: 2016
